FAERS Safety Report 9708619 (Version 1)
Quarter: 2013Q4

REPORT INFORMATION
  Report Type: Spontaneous
  Country: US (occurrence: None)
  Receive Date: 20131121
  Receipt Date: 20131121
  Transmission Date: 20140711
  Serious: Yes (Death)
  Sender: FDA-Public Use
  Company Number: 2013P1021132

PATIENT
  Age: 91 Year
  Sex: Female

DRUGS (5)
  1. VANCOMYCIN [Suspect]
     Indication: SEPSIS
  2. AMPICILLIN AND SULBACTAM [Suspect]
     Indication: SEPSIS
  3. PIPERACILLIN AND TAZOBACTAM [Suspect]
     Indication: SEPSIS
  4. CEFTAZIDIME [Suspect]
     Indication: SEPSIS
  5. AUGMENTIN [Suspect]
     Indication: SEPSIS

REACTIONS (1)
  - Linear IgA disease [None]
